FAERS Safety Report 9460661 (Version 1)
Quarter: 2013Q3

REPORT INFORMATION
  Report Type: Spontaneous
  Country: IL (occurrence: IL)
  Receive Date: 20130815
  Receipt Date: 20130815
  Transmission Date: 20140515
  Serious: Yes (Other)
  Sender: FDA-Public Use
  Company Number: IL-ELI_LILLY_AND_COMPANY-IL201308001755

PATIENT
  Age: 44 Year
  Sex: Female

DRUGS (3)
  1. HUMALOG LISPRO [Suspect]
     Indication: TYPE 1 DIABETES MELLITUS
     Dosage: 4 U, EACH MORNING
     Dates: start: 201306
  2. HUMALOG LISPRO [Suspect]
     Dosage: 8 U, BID
     Dates: start: 201306
  3. LEVEMIR [Concomitant]

REACTIONS (2)
  - Localised oedema [Recovering/Resolving]
  - Oedema peripheral [Recovering/Resolving]
